FAERS Safety Report 21883887 (Version 2)
Quarter: 2023Q2

REPORT INFORMATION
  Report Type: Spontaneous
  Country: US (occurrence: US)
  Receive Date: 20230119
  Receipt Date: 20230401
  Transmission Date: 20230721
  Serious: Yes (Other)
  Sender: FDA-Public Use
  Company Number: US-002147023-NVSC2023US009995

PATIENT
  Sex: Female

DRUGS (1)
  1. COSENTYX [Suspect]
     Active Substance: SECUKINUMAB
     Indication: Ankylosing spondylitis
     Dosage: 300 MG, QID
     Route: 058
     Dates: start: 202005, end: 202205

REACTIONS (2)
  - Ankylosing spondylitis [Not Recovered/Not Resolved]
  - Inappropriate schedule of product administration [Unknown]
